FAERS Safety Report 19785464 (Version 6)
Quarter: 2022Q2

REPORT INFORMATION
  Report Type: Spontaneous
  Country: US (occurrence: US)
  Receive Date: 20210903
  Receipt Date: 20220519
  Transmission Date: 20220721
  Serious: Yes (Hospitalization, Other)
  Sender: FDA-Public Use
  Company Number: NVSC2021US193559

PATIENT
  Age: 2 Year
  Sex: Female

DRUGS (1)
  1. ZOLGENSMA [Suspect]
     Active Substance: ONASEMNOGENE ABEPARVOVEC-XIOI
     Indication: Product used for unknown indication
     Dosage: UNK UNK, ONCE/SINGLE
     Route: 042

REACTIONS (30)
  - Influenza like illness [Unknown]
  - Respiratory distress [Unknown]
  - Nasopharyngitis [Unknown]
  - Atelectasis [Unknown]
  - Febrile convulsion [Unknown]
  - Choking [Unknown]
  - Pneumonia [Unknown]
  - Dyspnoea [Unknown]
  - Ileus [Unknown]
  - Laryngomalacia [Unknown]
  - Pneumothorax [Unknown]
  - Tachycardia [Unknown]
  - Tachypnoea [Unknown]
  - Speech disorder developmental [Unknown]
  - Dysphagia [Unknown]
  - Use of accessory respiratory muscles [Unknown]
  - Rhinovirus infection [Unknown]
  - Scoliosis [Unknown]
  - Back pain [Unknown]
  - Fluid retention [Unknown]
  - Lethargy [Unknown]
  - Pallor [Unknown]
  - Swelling [Unknown]
  - Pyrexia [Unknown]
  - Heart rate decreased [Unknown]
  - Tremor [Unknown]
  - Eye movement disorder [Unknown]
  - Withdrawal syndrome [Unknown]
  - Somnolence [Unknown]
  - Cough [Unknown]

NARRATIVE: CASE EVENT DATE: 20220326
